FAERS Safety Report 6738584-0 (Version None)
Quarter: 2010Q2

REPORT INFORMATION
  Report Type: 
  Country: None (occurrence: None)
  Receive Date: 20100524
  Receipt Date: 20100512
  Transmission Date: 20101027
  Serious: Yes (Other)
  Sender: FDA-Public Use
  Company Number: JP-PFIZER INC-2010061306

PATIENT
  Age: 36 Year
  Sex: Male

DRUGS (1)
  1. ZITHROMAX [Suspect]
     Dosage: 2 TABLETS
     Route: 048
     Dates: start: 20100510

REACTIONS (1)
  - DERMATITIS BULLOUS [None]
